FAERS Safety Report 18221709 (Version 1)
Quarter: 2020Q3

REPORT INFORMATION
  Report Type: Spontaneous
  Country: US (occurrence: US)
  Receive Date: 20200902
  Receipt Date: 20200902
  Transmission Date: 20201103
  Serious: No
  Sender: FDA-Public Use
  Company Number: US-DECIPHERA PHARMACEUTICALS LLC-2020-US-000005

PATIENT
  Age: 67 Year
  Sex: Male

DRUGS (5)
  1. QINLOCK [Suspect]
     Active Substance: RIPRETINIB
     Indication: GASTROINTESTINAL STROMAL TUMOUR
     Dosage: 300 MILLIGRAM, BID
     Route: 048
     Dates: start: 20200603
  2. QINLOCK [Suspect]
     Active Substance: RIPRETINIB
     Dosage: 300 MILLIGRAM, BID
     Route: 048
     Dates: start: 20200623
  3. QINLOCK [Suspect]
     Active Substance: RIPRETINIB
     Dosage: 250 MILLIGRAM, QD
     Route: 048
  4. QINLOCK [Suspect]
     Active Substance: RIPRETINIB
     Dosage: 100 MILLIGRAM, QD, AM
     Route: 048
     Dates: start: 20200623
  5. QINLOCK [Suspect]
     Active Substance: RIPRETINIB
     Dosage: 150 MILLIGRAM, QD, PM
     Route: 048
     Dates: start: 20200623

REACTIONS (21)
  - Mood altered [Unknown]
  - Gingival discomfort [Unknown]
  - Appetite disorder [Unknown]
  - Fatigue [Unknown]
  - Incorrect dose administered [Unknown]
  - Product dose omission issue [Unknown]
  - Gingival bleeding [Unknown]
  - Dry skin [Unknown]
  - Product coating issue [Unknown]
  - Prostatomegaly [Unknown]
  - Memory impairment [Unknown]
  - Gingival pain [Unknown]
  - Overdose [Unknown]
  - Mucosal disorder [Unknown]
  - Hyperkeratosis [Unknown]
  - Alopecia [Unknown]
  - Product use complaint [Unknown]
  - Muscle spasms [Unknown]
  - Abdominal distension [Unknown]
  - Palmar-plantar erythrodysaesthesia syndrome [Unknown]
  - Weight decreased [Unknown]

NARRATIVE: CASE EVENT DATE: 20200603
